FAERS Safety Report 18081919 (Version 2)
Quarter: 2020Q3

REPORT INFORMATION
  Report Type: Spontaneous
  Country: US (occurrence: US)
  Receive Date: 20200728
  Receipt Date: 20200730
  Transmission Date: 20201103
  Serious: Yes (Other)
  Sender: FDA-Public Use
  Company Number: US-PFIZER INC-2020285973

PATIENT
  Age: 72 Year
  Sex: Male

DRUGS (3)
  1. MEDROL [Suspect]
     Active Substance: METHYLPREDNISOLONE
     Indication: JOINT STIFFNESS
     Dosage: 4 MG, TWICE DAILY (2 X 4MG TABLETS THE SECOND DAY)
     Route: 048
  2. MEDROL [Suspect]
     Active Substance: METHYLPREDNISOLONE
     Indication: ARTHRALGIA
     Dosage: 4 MG, THRICE DAILY (3 X 4 MG TABLETS THE FIRST DAY)
     Route: 048
  3. MEDROL [Suspect]
     Active Substance: METHYLPREDNISOLONE
     Indication: PSORIATIC ARTHROPATHY
     Dosage: 4 MG, ONCE DAILY (1 X 4MG TABLET PER DAY)
     Route: 048

REACTIONS (3)
  - Psoriatic arthropathy [Unknown]
  - Treatment noncompliance [Unknown]
  - Intentional product misuse [Unknown]
